FAERS Safety Report 6527224-1 (Version None)
Quarter: 2009Q4

REPORT INFORMATION
  Report Type: 
  Country: None (occurrence: None)
  Receive Date: 20091222
  Receipt Date: 20091008
  Transmission Date: 20100525
  Serious: No
  Sender: FDA-Public Use
  Company Number: ALL1-2009-03125

PATIENT
  Age: 49 Year
  Sex: Female
  Weight: 145.1 kg

DRUGS (5)
  1. VYVANSE [Suspect]
     Indication: ATTENTION DEFICIT/HYPERACTIVITY DISORDER
     Dosage: 60 MG, 1X/DAY:QD, ORAL
     Route: 048
     Dates: start: 20090801
  2. SYNTHROID (LEVOTHYROXINE SODIUM) TABLET [Concomitant]
  3. METFORMIN HCL [Concomitant]
  4. BENICAR (OLEMESARTAN MEDOXOMIL) TABLET [Concomitant]
  5. LASIX /00032601/ (FUROSEMIDE) TABLET [Concomitant]

REACTIONS (1)
  - INFLUENZA [None]
